FAERS Safety Report 10481288 (Version 2)
Quarter: 2014Q4

REPORT INFORMATION
  Report Type: Report from Study
  Country: CA (occurrence: CA)
  Receive Date: 20140929
  Receipt Date: 20141016
  Transmission Date: 20150528
  Serious: Yes (Hospitalization, Other)
  Sender: FDA-Public Use
  Company Number: CA-JNJFOC-20140920747

PATIENT
  Age: 63 Year
  Sex: Female
  Weight: 93 kg

DRUGS (28)
  1. COUMADIN [Concomitant]
     Active Substance: WARFARIN SODIUM
     Route: 065
  2. COLACE [Concomitant]
     Active Substance: DOCUSATE SODIUM
     Dosage: HOUR OF SLEEP, WHEN NECESSARY
     Route: 048
  3. SENOKOT [Concomitant]
     Active Substance: SENNOSIDES
     Dosage: 17.2 TO 25.8 MG=2-3 TABLETS, ORALLY 0 TO THREE TIMES A DAY AS NECESSARY
     Route: 048
  4. SERC [Concomitant]
     Active Substance: BETAHISTINE HYDROCHLORIDE
     Dosage: 8 MG PER TABLET, 16 MG=2 TABLETS ORALLY THREE TIMES A DAY
     Route: 048
  5. DILAUDID [Concomitant]
     Active Substance: HYDROMORPHONE HYDROCHLORIDE
     Dosage: 2-3MG=1-1.5 TABLETS EVERY 4 H WHEN NECESSARY.
     Route: 048
  6. LYRICA [Concomitant]
     Active Substance: PREGABALIN
     Dosage: 100MG=2 CAPSULES
     Route: 048
     Dates: start: 2014
  7. PROZAC [Concomitant]
     Active Substance: FLUOXETINE HYDROCHLORIDE
     Dosage: 100 MG=1 CAPSULE TWO TIMES A DAY
     Route: 048
  8. WELLBUTRIN [Concomitant]
     Active Substance: BUPROPION HYDROCHLORIDE
     Dosage: 100 MG=1 TABLET, ONCE A DAY
     Route: 048
  9. RIVOTRIL [Concomitant]
     Active Substance: CLONAZEPAM
     Dosage: 0.5 MG=1 TABLET, TWICE A DAY
     Route: 048
  10. HYDRODIURIL [Concomitant]
     Active Substance: HYDROCHLOROTHIAZIDE
     Dosage: 25 MG=1 TABLET ORALLY ONCE A DAY
     Route: 048
  11. SENOKOT [Concomitant]
     Active Substance: SENNOSIDES
     Dosage: 200 MG 2 TABLETSAT HOUR OF SLEEP WHEN NECESSARY
     Route: 048
  12. LOSEC [Concomitant]
     Active Substance: OMEPRAZOLE
     Dosage: WAS SUBSTITUTED FOR ANOTHER AT HMR
     Route: 065
  13. PREDNISONE. [Concomitant]
     Active Substance: PREDNISONE
     Indication: ARTHRALGIA
     Dosage: 10 MG=2 TABLETS ONCE A DAY.
     Route: 048
  14. FOSAMAX [Concomitant]
     Active Substance: ALENDRONATE SODIUM
     Dosage: 30-60 MINUTES BEFORE BREAKFAST
     Route: 048
  15. COLACE [Concomitant]
     Active Substance: DOCUSATE SODIUM
     Dosage: 200 MG=2 CAPSULES, ONCE A DAY TO THRICE A DAY
     Route: 048
  16. LEUCOVORIN [Concomitant]
     Active Substance: LEUCOVORIN
     Dosage: 2.5 MG=0.5 TABLET ONCE A WEEK, MORNING ON WEDNESDAYS.
     Route: 048
     Dates: end: 20140827
  17. OSCAL VITAMIN D [Concomitant]
     Dosage: 500 MG (CALCIUM)+ 400U (VITAMIN D)
     Route: 048
  18. LYRICA [Concomitant]
     Active Substance: PREGABALIN
     Dosage: 75MG=1 CAPSULE
     Route: 048
     Dates: end: 20140827
  19. METHOTREXATE [Concomitant]
     Active Substance: METHOTREXATE
     Dosage: 17.5MG=7 TABLETS, ONCE EVERY 8 WEEKS ON TUESDAYS
     Route: 048
     Dates: end: 20140826
  20. INNOHEP [Concomitant]
     Active Substance: TINZAPARIN SODIUM
     Dosage: 16000UNITS=0.8 ML
     Route: 058
  21. TYLENOL [Concomitant]
     Active Substance: ACETAMINOPHEN
     Route: 048
  22. ASACOL [Concomitant]
     Active Substance: MESALAMINE
     Dosage: 800 MG=2 TABLETS, TWO TIMES A DAY
     Route: 048
  23. RESTORIL [Concomitant]
     Active Substance: TEMAZEPAM
     Dosage: 15 MG=1 CAPSULE, AT HOUR OF SLEEP WHEN NECESSARY
     Route: 048
  24. LIPITOR [Concomitant]
     Active Substance: ATORVASTATIN CALCIUM
     Dosage: 20 MG=1 TABLET, AT PM, ONCE EVERY TWO DAYS
     Route: 048
     Dates: end: 20140826
  25. SUPEUDOL [Concomitant]
     Active Substance: OXYCODONE HYDROCHLORIDE
     Dosage: 5 MG=1 TABLET EVERY 4-6 HOURS WHEN NECESSARY.
     Route: 048
     Dates: end: 20140827
  26. ORPHENADRINE [Concomitant]
     Active Substance: ORPHENADRINE
     Dosage: 100MG=1 TABLET, TWICE A DAY
     Route: 048
  27. REMICADE [Suspect]
     Active Substance: INFLIXIMAB
     Indication: RHEUMATOID ARTHRITIS
     Dosage: ALSO REPORTED AS DOSING ACCORDING TO WEIGHT, ONCE EVERY 8 WEEKS
     Route: 042
     Dates: start: 2004, end: 20140829
  28. EMPRACET [Concomitant]
     Route: 065

REACTIONS (2)
  - Benign neoplasm [Not Recovered/Not Resolved]
  - Thrombosis [Not Recovered/Not Resolved]

NARRATIVE: CASE EVENT DATE: 201408
